FAERS Safety Report 5745329-X (Version None)
Quarter: 2008Q2

REPORT INFORMATION
  Report Type: 
  Country: None (occurrence: None)
  Receive Date: 20080521
  Receipt Date: 20080512
  Transmission Date: 20081010
  Serious: Yes (Hospitalization)
  Sender: FDA-Public Use
  Company Number: US-MERCK-0705USA02819

PATIENT
  Age: 82 Year
  Sex: Male

DRUGS (2)
  1. FOSAMAX [Suspect]
     Indication: OSTEOPOROSIS
     Route: 048
     Dates: start: 20040101, end: 20060101
  2. [THERAPY UNSPECIFIED] [Concomitant]
     Indication: RHEUMATOID ARTHRITIS
     Route: 065
     Dates: start: 19850101

REACTIONS (34)
  - ANXIETY [None]
  - BLOOD PRESSURE INCREASED [None]
  - COMPRESSION FRACTURE [None]
  - CONFUSIONAL STATE [None]
  - CONSTIPATION [None]
  - CONTUSION [None]
  - DEHYDRATION [None]
  - DEMENTIA [None]
  - DENTAL CARIES [None]
  - DEPRESSION [None]
  - EXCORIATION [None]
  - FALL [None]
  - GINGIVAL BLEEDING [None]
  - HYDROCELE [None]
  - HYPERTENSION [None]
  - HYPOAESTHESIA ORAL [None]
  - INSOMNIA [None]
  - INTERVERTEBRAL DISC DEGENERATION [None]
  - INTERVERTEBRAL DISC PROTRUSION [None]
  - JAW DISORDER [None]
  - JOINT RANGE OF MOTION DECREASED [None]
  - LUMBAR RADICULOPATHY [None]
  - LUMBAR SPINAL STENOSIS [None]
  - LUNG NEOPLASM [None]
  - MUSCULAR WEAKNESS [None]
  - OEDEMA MOUTH [None]
  - ORAL PAIN [None]
  - OSTEOARTHRITIS [None]
  - PAIN [None]
  - RHABDOMYOLYSIS [None]
  - SCOLIOSIS [None]
  - TOOTH FRACTURE [None]
  - TOOTH LOSS [None]
  - URINARY RETENTION [None]
